FAERS Safety Report 14993174 (Version 2)
Quarter: 2018Q2

REPORT INFORMATION
  Report Type: Spontaneous
  Country: SK (occurrence: SK)
  Receive Date: 20180610
  Receipt Date: 20180610
  Transmission Date: 20180711
  Serious: Yes (Other)
  Sender: FDA-Public Use
  Company Number: PHHY2018SK009062

PATIENT
  Age: 34 Year
  Sex: Male
  Weight: 85 kg

DRUGS (7)
  1. ETANERCEPT [Suspect]
     Active Substance: ETANERCEPT
     Indication: PSORIASIS
     Route: 065
  2. EFALIZUMAB [Suspect]
     Active Substance: EFALIZUMAB
     Indication: PSORIASIS
     Route: 065
  3. INFLIXIMAB [Suspect]
     Active Substance: INFLIXIMAB
     Indication: PSORIASIS
     Route: 065
  4. USTEKINUMAB [Suspect]
     Active Substance: USTEKINUMAB
     Indication: PSORIASIS
     Route: 065
  5. ISONIAZIDE [Concomitant]
     Active Substance: ISONIAZID
     Indication: PRODUCT USED FOR UNKNOWN INDICATION
     Route: 065
  6. SECUKINUMAB. [Suspect]
     Active Substance: SECUKINUMAB
     Indication: PSORIASIS
     Dosage: UNK
     Route: 065
     Dates: start: 201603, end: 201611
  7. ADALIMUMAB [Suspect]
     Active Substance: ADALIMUMAB
     Indication: PSORIASIS
     Route: 065

REACTIONS (2)
  - Haemolytic anaemia [Recovering/Resolving]
  - Drug ineffective [Unknown]
